FAERS Safety Report 4342490-9 (Version None)
Quarter: 2004Q2

REPORT INFORMATION
  Report Type: 
  Country: None (occurrence: None)
  Receive Date: 20040419
  Receipt Date: 20040419
  Transmission Date: 20050107
  Serious: Yes (Hospitalization)
  Sender: FDA-Public Use
  Company Number: None

PATIENT
  Age: 77 Year
  Sex: Female
  Weight: 77 kg

DRUGS (3)
  1. LIPITOR [Suspect]
     Dosage: 10 MG QAM
  2. ZYPREXA [Concomitant]
  3. RISPERDAL [Concomitant]

REACTIONS (1)
  - RHABDOMYOLYSIS [None]
